FAERS Safety Report 13932739 (Version 2)
Quarter: 2018Q1

REPORT INFORMATION
  Report Type: Report from Study
  Country: FR (occurrence: FR)
  Receive Date: 20170904
  Receipt Date: 20180223
  Transmission Date: 20180508
  Serious: Yes (Hospitalization)
  Sender: FDA-Public Use
  Company Number: FR-ASTRAZENECA-2017SE89012

PATIENT
  Age: 20570 Day
  Sex: Male

DRUGS (11)
  1. DURVALUMAB. [Suspect]
     Active Substance: DURVALUMAB
     Indication: SQUAMOUS CELL CARCINOMA OF HEAD AND NECK
     Dosage: 1120 MG ONCE A DAY
     Route: 042
     Dates: end: 20170707
  2. EMEND [Concomitant]
     Active Substance: APREPITANT
  3. DURVALUMAB. [Suspect]
     Active Substance: DURVALUMAB
     Indication: SQUAMOUS CELL CARCINOMA OF HEAD AND NECK
     Dosage: 1120 MG ONCE A DAY
     Route: 042
     Dates: start: 20170627, end: 20170704
  4. INNOHEP [Concomitant]
     Active Substance: TINZAPARIN SODIUM
  5. ACTISKENAN [Concomitant]
     Active Substance: MORPHINE SULFATE
  6. 5-FU [Suspect]
     Active Substance: FLUOROURACIL
     Indication: SQUAMOUS CELL CARCINOMA OF HEAD AND NECK
     Route: 065
  7. DOCETAXEL. [Suspect]
     Active Substance: DOCETAXEL
     Indication: SQUAMOUS CELL CARCINOMA OF HEAD AND NECK
     Route: 065
  8. BDD BICARBONATE+ELUDRIL [Concomitant]
  9. CISPLATIN. [Suspect]
     Active Substance: CISPLATIN
     Indication: SQUAMOUS CELL CARCINOMA OF HEAD AND NECK
     Route: 065
  10. ZOPHREN [Concomitant]
     Active Substance: ONDANSETRON
  11. SKENAN [Concomitant]
     Active Substance: MORPHINE SULFATE

REACTIONS (2)
  - Mucosal inflammation [Recovered/Resolved]
  - Febrile neutropenia [Recovered/Resolved]

NARRATIVE: CASE EVENT DATE: 20170705
